FAERS Safety Report 11493119 (Version 1)
Quarter: 2015Q3

REPORT INFORMATION
  Report Type: Spontaneous
  Country: US (occurrence: None)
  Receive Date: 20150910
  Receipt Date: 20150910
  Transmission Date: 20151125
  Serious: Yes (Other)
  Sender: FDA-Public Use
  Company Number: None

PATIENT
  Age: 9 Year
  Sex: Male

DRUGS (1)
  1. MIRALAX [Suspect]
     Active Substance: POLYETHYLENE GLYCOL 3350
     Indication: CONSTIPATION
     Dosage: 1.5 CAPFULS
     Route: 048
     Dates: start: 20120301, end: 20150401

REACTIONS (3)
  - Hypermetropia [None]
  - Benign rolandic epilepsy [None]
  - Growth retardation [None]

NARRATIVE: CASE EVENT DATE: 20150412
